FAERS Safety Report 11100073 (Version 15)
Quarter: 2017Q2

REPORT INFORMATION
  Report Type: Report from Study
  Country: CA (occurrence: CA)
  Receive Date: 20150508
  Receipt Date: 20170620
  Transmission Date: 20170829
  Serious: Yes (Hospitalization, Other)
  Sender: FDA-Public Use
  Company Number: PHHY2014CA161168

PATIENT
  Age: 78 Year
  Sex: Female
  Weight: 57.14 kg

DRUGS (3)
  1. SANDOSTATIN LAR DEPOT [Suspect]
     Active Substance: OCTREOTIDE ACETATE
     Dosage: 20 MG, UNK
     Route: 030
  2. LISINOPRIL. [Concomitant]
     Active Substance: LISINOPRIL
     Indication: PRODUCT USED FOR UNKNOWN INDICATION
     Dosage: UNK
     Route: 065
  3. SANDOSTATIN LAR DEPOT [Suspect]
     Active Substance: OCTREOTIDE ACETATE
     Indication: NEUROENDOCRINE TUMOUR
     Dosage: 20 MG, QMO
     Route: 030
     Dates: start: 20141107

REACTIONS (28)
  - Blood pressure increased [Unknown]
  - Depression [Unknown]
  - Dizziness [Unknown]
  - Needle issue [Unknown]
  - Body temperature decreased [Not Recovered/Not Resolved]
  - Amnesia [Unknown]
  - Blood pressure decreased [Unknown]
  - Lung infection [Unknown]
  - Weight decreased [Unknown]
  - Fall [Unknown]
  - Injection site haemorrhage [Recovered/Resolved]
  - Cough [Unknown]
  - Blood pressure systolic increased [Unknown]
  - Gastrointestinal disorder [Unknown]
  - Confusional state [Unknown]
  - Feeding disorder [Unknown]
  - Contusion [Unknown]
  - Memory impairment [Unknown]
  - Dehydration [Unknown]
  - Blood pressure systolic decreased [Unknown]
  - Blood pressure diastolic decreased [Unknown]
  - Balance disorder [Unknown]
  - Somnolence [Unknown]
  - Decreased activity [Unknown]
  - Abdominal pain [Recovered/Resolved]
  - Asthenia [Unknown]
  - Dyspnoea [Unknown]
  - Hypotension [Unknown]

NARRATIVE: CASE EVENT DATE: 20141204
